FAERS Safety Report 25131234 (Version 1)
Quarter: 2025Q1

REPORT INFORMATION
  Report Type: Spontaneous
  Country: US (occurrence: None)
  Receive Date: 20250327
  Receipt Date: 20250327
  Transmission Date: 20250408
  Serious: Yes (unspecified)
  Sender: FDA-CTU
  Company Number: None

PATIENT
  Age: 75 Year
  Sex: Male
  Weight: 69.8 kg

DRUGS (1)
  1. LACTATED RINGERS SOLUTION [Suspect]
     Active Substance: CALCIUM CHLORIDE\POTASSIUM CHLORIDE\SODIUM CHLORIDE\SODIUM LACTATE
     Indication: Dehydration
     Route: 041
     Dates: start: 20250313, end: 20250313

REACTIONS (3)
  - Injection site pain [None]
  - Injection site hypoaesthesia [None]
  - Injection site pruritus [None]

NARRATIVE: CASE EVENT DATE: 20250313
